FAERS Safety Report 25187366 (Version 1)
Quarter: 2025Q2

REPORT INFORMATION
  Report Type: Spontaneous
  Country: US (occurrence: US)
  Receive Date: 20250411
  Receipt Date: 20250411
  Transmission Date: 20250716
  Serious: No
  Sender: LEO PHARM
  Company Number: US-LEO Pharma-379035

PATIENT
  Age: 49 Year
  Sex: Male

DRUGS (1)
  1. ADBRY [Suspect]
     Active Substance: TRALOKINUMAB-LDRM
     Indication: Dyshidrotic eczema
     Dosage: TREATMENT IS ONGOING
     Dates: start: 202501

REACTIONS (2)
  - Product prescribing issue [Unknown]
  - Eczema [Unknown]
